FAERS Safety Report 14558542 (Version 1)
Quarter: 2018Q1

REPORT INFORMATION
  Report Type: Spontaneous
  Country: JP (occurrence: JP)
  Receive Date: 20180221
  Receipt Date: 20180221
  Transmission Date: 20180509
  Serious: Yes (Hospitalization)
  Sender: FDA-Public Use
  Company Number: JP-ELI_LILLY_AND_COMPANY-JP201802008805

PATIENT
  Age: 48 Year
  Sex: Male
  Weight: 53 kg

DRUGS (3)
  1. CARBOPLATIN. [Suspect]
     Active Substance: CARBOPLATIN
     Indication: HYPOPHARYNGEAL CANCER
     Dosage: 378 MG, UNKNOWN
     Route: 041
     Dates: start: 20140221, end: 20140418
  2. ERBITUX [Suspect]
     Active Substance: CETUXIMAB
     Indication: HYPOPHARYNGEAL CANCER
     Dosage: 400 MG, UNKNOWN
     Route: 041
     Dates: start: 20140221, end: 20140418
  3. PACLITAXEL. [Suspect]
     Active Substance: PACLITAXEL
     Indication: HYPOPHARYNGEAL CANCER
     Dosage: 161 MG, UNKNOWN
     Route: 041
     Dates: start: 20140221, end: 20140418

REACTIONS (3)
  - Performance status decreased [Unknown]
  - Malaise [Unknown]
  - Neutrophil count decreased [Unknown]

NARRATIVE: CASE EVENT DATE: 20140425
